FAERS Safety Report 6020086-0 (Version None)
Quarter: 2008Q4

REPORT INFORMATION
  Report Type: 
  Country: None (occurrence: None)
  Receive Date: 20081226
  Receipt Date: 20081217
  Transmission Date: 20090506
  Serious: Yes (Hospitalization, Other)
  Sender: FDA-Public Use
  Company Number: NL-BAYER-200833169GPV

PATIENT
  Age: 46 Year
  Sex: Male

DRUGS (7)
  1. CIPROFLOXACIN HCL [Suspect]
     Indication: UROSEPSIS
     Dosage: TOTAL DAILY DOSE: 800 MG
     Route: 042
  2. CLOZAPINE [Interacting]
     Indication: SCHIZOPHRENIA, PARANOID TYPE
     Route: 065
  3. CLOZAPINE [Interacting]
     Route: 065
  4. AMOXICILLIN [Concomitant]
     Indication: UROSEPSIS
     Route: 065
  5. CITALOPRAM [Concomitant]
     Indication: SCHIZOPHRENIA, PARANOID TYPE
     Route: 065
  6. LORAZEPAM [Concomitant]
     Indication: SCHIZOPHRENIA, PARANOID TYPE
     Route: 065
  7. VALPROIC ACID [Concomitant]
     Indication: SCHIZOPHRENIA, PARANOID TYPE
     Route: 065

REACTIONS (1)
  - RHABDOMYOLYSIS [None]
